FAERS Safety Report 6232375-5 (Version None)
Quarter: 2009Q2

REPORT INFORMATION
  Report Type: 
  Country: None (occurrence: None)
  Receive Date: 20090617
  Receipt Date: 20090608
  Transmission Date: 20091009
  Serious: Yes (Hospitalization)
  Sender: FDA-Public Use
  Company Number: PHHY2009JP08349

PATIENT
  Sex: Male
  Weight: 77 kg

DRUGS (15)
  1. ICL670A ICL+DISTAB [Suspect]
     Indication: IRON OVERLOAD
     Dosage: 1500 MG, QD
     Route: 048
     Dates: start: 20080916, end: 20081202
  2. ICL670A ICL+DISTAB [Suspect]
     Dosage: 1500 MG, QD
     Route: 048
     Dates: start: 20090106
  3. NEORAL [Suspect]
     Indication: MYELODYSPLASTIC SYNDROME
     Dosage: 150 MG DAILY
     Route: 048
     Dates: start: 20081021, end: 20081201
  4. STEROIDS NOS [Suspect]
  5. BACTRAMIN [Concomitant]
     Dosage: 5 DF, UNK
     Route: 042
     Dates: start: 20081202, end: 20081204
  6. BACTRAMIN [Concomitant]
     Dosage: 4 G, UNK
     Route: 048
     Dates: start: 20081212, end: 20090105
  7. DENOSINE [Concomitant]
     Dosage: 250 MG, UNK
     Route: 042
     Dates: start: 20081202, end: 20081204
  8. CLARITHROMYCIN [Concomitant]
     Dosage: 400 MG, UNK
     Route: 048
     Dates: start: 20081202, end: 20081204
  9. CLARITHROMYCIN [Concomitant]
     Dosage: 400 MG, UNK
     Dates: start: 20081205, end: 20081224
  10. MAXIPIME [Concomitant]
     Dosage: 2 G, UNK
     Route: 042
     Dates: start: 20081215, end: 20081225
  11. PLATELETS [Concomitant]
     Indication: MYELODYSPLASTIC SYNDROME
     Dosage: 10 U, UNK
     Dates: start: 20080916
  12. PLATELETS [Concomitant]
     Dosage: 10 U, UNK
     Dates: start: 20080924
  13. RED BLOOD CELLS [Concomitant]
     Indication: MYELODYSPLASTIC SYNDROME
     Dosage: 2 U, UNK
     Dates: start: 20080916
  14. RED BLOOD CELLS [Concomitant]
     Dosage: 4 U, UNK
     Dates: start: 20080924
  15. RED BLOOD CELLS [Concomitant]
     Dosage: 2 U, UNK
     Dates: start: 20081001

REACTIONS (1)
  - INTERSTITIAL LUNG DISEASE [None]
